FAERS Safety Report 4745660-0 (Version None)
Quarter: 2005Q3

REPORT INFORMATION
  Report Type: 
  Country: None (occurrence: None)
  Receive Date: 20050811
  Receipt Date: 20050728
  Transmission Date: 20060218
  Serious: Yes (Hospitalization)
  Sender: FDA-Public Use
  Company Number: CERZ-10964

PATIENT
  Age: 8 Year
  Sex: Male
  Weight: 23 kg

DRUGS (14)
  1. CEREZYME [Suspect]
     Indication: GAUCHER'S DISEASE
     Dosage: 1600 UNITS Q2WKS IV
     Route: 042
     Dates: start: 20030903
  2. CEREZYME [Suspect]
     Indication: GAUCHER'S DISEASE
     Dosage: 1400 UNITS Q2WKS IV
     Route: 042
     Dates: start: 20030625, end: 20030820
  3. CEREZYME [Suspect]
     Indication: GAUCHER'S DISEASE
     Dosage: 2400 UNITS Q2WKS IV
     Route: 042
     Dates: end: 20030601
  4. CEREZYME [Suspect]
     Indication: GAUCHER'S DISEASE
     Dosage: 60 U/KG Q2WKS IV
     Route: 042
     Dates: start: 19980218
  5. PRIMIDONE [Concomitant]
  6. VALPROATE SODIUM [Concomitant]
  7. PIRACETAM [Concomitant]
  8. CLONAZEPAM [Concomitant]
  9. PHENOBARBITAL TAB [Concomitant]
  10. NITRAZEPAM [Concomitant]
  11. TRIAZOLAM [Concomitant]
  12. DIAZEPAM [Concomitant]
  13. CARBOCISTEINE [Concomitant]
  14. AMBROXOL HYDROCHLORIDE [Concomitant]

REACTIONS (2)
  - COUGH [None]
  - PNEUMONIA [None]
